FAERS Safety Report 10802969 (Version 2)
Quarter: 2015Q2

REPORT INFORMATION
  Report Type: Spontaneous
  Country: US (occurrence: US)
  Receive Date: 20150217
  Receipt Date: 20150402
  Transmission Date: 20150821
  Serious: No
  Sender: FDA-Public Use
  Company Number: US-PFIZER INC-2015053577

PATIENT
  Age: 67 Year
  Sex: Female

DRUGS (1)
  1. ESTROGENS CONJUGATED [Suspect]
     Active Substance: ESTROGENS, CONJUGATED
     Dosage: UNK
     Route: 048

REACTIONS (4)
  - Vomiting [Unknown]
  - Drug ineffective [Unknown]
  - Malaise [Unknown]
  - Migraine [Unknown]
